FAERS Safety Report 6702861-X (Version None)
Quarter: 2010Q2

REPORT INFORMATION
  Report Type: 
  Country: None (occurrence: None)
  Receive Date: 20100429
  Receipt Date: 20100429
  Transmission Date: 20101027
  Serious: Yes (Hospitalization)
  Sender: FDA-Public Use
  Company Number: None

PATIENT
  Age: 68 Year
  Sex: Male

DRUGS (1)
  1. ETANERCEPT [Suspect]
     Indication: RHEUMATOID ARTHRITIS
     Dosage: 50 MG QWEEK SQ
     Route: 058
     Dates: start: 20080401, end: 20081201

REACTIONS (5)
  - ATRIAL FIBRILLATION [None]
  - ESCHERICHIA INFECTION [None]
  - PALPITATIONS [None]
  - SEPSIS [None]
  - URINARY TRACT INFECTION [None]
